FAERS Safety Report 21382503 (Version 1)
Quarter: 2022Q3

REPORT INFORMATION
  Report Type: Spontaneous
  Country: CN (occurrence: None)
  Receive Date: 20220927
  Receipt Date: 20220927
  Transmission Date: 20221026
  Serious: Yes (Other)
  Sender: FDA-Public Use
  Company Number: CN-ROCHE-3186030

PATIENT
  Age: 63 Year
  Sex: Female

DRUGS (3)
  1. XELODA [Suspect]
     Active Substance: CAPECITABINE
     Indication: Oesophageal carcinoma
     Route: 048
     Dates: start: 20220408, end: 20220505
  2. XELODA [Suspect]
     Active Substance: CAPECITABINE
     Route: 048
     Dates: start: 20220816
  3. TISLELIZUMAB [Concomitant]
     Active Substance: TISLELIZUMAB
     Indication: Oesophageal carcinoma
     Dates: start: 20220408, end: 20220505

REACTIONS (2)
  - Myelosuppression [Unknown]
  - Intentional product use issue [Unknown]

NARRATIVE: CASE EVENT DATE: 20220907
